FAERS Safety Report 24203987 (Version 1)
Quarter: 2024Q3

REPORT INFORMATION
  Report Type: Spontaneous
  Country: TW (occurrence: TW)
  Receive Date: 20240813
  Receipt Date: 20240813
  Transmission Date: 20241017
  Serious: Yes (Death, Other)
  Sender: RANBAXY
  Company Number: TW-SUN PHARMACEUTICAL INDUSTRIES LTD-2024R1-461805

PATIENT
  Age: 66 Year
  Sex: Male

DRUGS (2)
  1. METHOTREXATE [Suspect]
     Active Substance: METHOTREXATE
     Indication: Psoriasis
     Dosage: 15 MILLIGRAM, WEEKLY
     Route: 065
     Dates: start: 202007, end: 202110
  2. ADALIMUMAB [Suspect]
     Active Substance: ADALIMUMAB
     Indication: Psoriasis
     Dosage: UNK (80 MG,EVERY TWO WEEKS)
     Route: 065
     Dates: start: 201808

REACTIONS (6)
  - Condition aggravated [Fatal]
  - Disseminated intravascular coagulation [Fatal]
  - Angioimmunoblastic T-cell lymphoma [Unknown]
  - Adenoidal hypertrophy [Unknown]
  - Oropharyngeal lymphoid hyperplasia [Unknown]
  - Epstein-Barr virus infection reactivation [Unknown]

NARRATIVE: CASE EVENT DATE: 20220801
